FAERS Safety Report 19278465 (Version 1)
Quarter: 2021Q2

REPORT INFORMATION
  Report Type: Report from Study
  Country: US (occurrence: US)
  Receive Date: 20210520
  Receipt Date: 20210520
  Transmission Date: 20210717
  Serious: Yes (Hospitalization)
  Sender: FDA-Public Use
  Company Number: US-MYLANLABS-2021M1028461

PATIENT
  Age: 48 Year
  Sex: Female

DRUGS (5)
  1. DOXORUBICIN [Suspect]
     Active Substance: DOXORUBICIN
     Indication: B-CELL LYMPHOMA
     Dosage: RECEIVED 6 CYCLES OF R?CHOP REGIMEN COMPRISING RITUXIMAB, CYCLOPHOSPHAMIDE, DOXORUBICIN...
     Route: 065
  2. VINCRISTINE SULFATE. [Suspect]
     Active Substance: VINCRISTINE SULFATE
     Indication: B-CELL LYMPHOMA
     Dosage: RECEIVED 6 CYCLES OF R?CHOP REGIMEN COMPRISING RITUXIMAB, CYCLOPHOSPHAMIDE, DOXORUBICIN..
     Route: 065
  3. PREDNISONE. [Suspect]
     Active Substance: PREDNISONE
     Indication: B-CELL LYMPHOMA
     Dosage: RECEIVED 6 CYCLES OF R?CHOP REGIMEN COMPRISING RITUXIMAB, CYCLOPHOSPHAMIDE, DOXORUBICIN..
     Route: 065
  4. RITUXIMAB. [Suspect]
     Active Substance: RITUXIMAB
     Indication: B-CELL LYMPHOMA
     Dosage: RECEIVED 6 CYCLES OF R?CHOP REGIMEN COMPRISING RITUXIMAB, CYCLOPHOSPHAMIDE, DOXORUBICIN..
     Route: 065
  5. CYCLOPHOSPHAMIDE. [Suspect]
     Active Substance: CYCLOPHOSPHAMIDE
     Indication: B-CELL LYMPHOMA
     Dosage: RECEIVED 6 CYCLES OF R?CHOP REGIMEN COMPRISING RITUXIMAB, CYCLOPHOSPHAMIDE, DOXORUBICIN..
     Route: 065

REACTIONS (2)
  - Mass [Recovering/Resolving]
  - Tumour necrosis [Recovering/Resolving]
